FAERS Safety Report 7280045-7 (Version None)
Quarter: 2011Q1

REPORT INFORMATION
  Report Type: 
  Country: None (occurrence: None)
  Receive Date: 20110203
  Receipt Date: 20110203
  Transmission Date: 20110831
  Serious: Yes (Death)
  Sender: FDA-Public Use
  Company Number: None

PATIENT
  Age: 66 Year
  Sex: Female
  Weight: 90.7194 kg

DRUGS (1)
  1. ARIMIDEX [Suspect]
     Indication: BREAST CANCER
     Dosage: 1 TAB DAILY PO
     Route: 048
     Dates: start: 20080101, end: 20101017

REACTIONS (3)
  - IMPAIRED DRIVING ABILITY [None]
  - DISSOCIATION [None]
  - ROAD TRAFFIC ACCIDENT [None]
